FAERS Safety Report 4917345-9 (Version None)
Quarter: 2006Q1

REPORT INFORMATION
  Report Type: 
  Country: None (occurrence: None)
  Receive Date: 20060221
  Receipt Date: 20051011
  Transmission Date: 20060701
  Serious: Yes (Hospitalization, Other)
  Sender: FDA-Public Use
  Company Number: US-MERCK-0510USA06589

PATIENT
  Age: 50 Year
  Sex: Male
  Weight: 93 kg

DRUGS (6)
  1. VIOXX [Suspect]
     Indication: PAIN
     Route: 048
     Dates: start: 19990101, end: 20041101
  2. HYZAAR [Concomitant]
     Indication: HYPERTENSION
     Route: 048
  3. NIASPAN [Concomitant]
     Indication: PAIN
     Route: 065
     Dates: start: 20040101
  4. TOPROL-XL [Concomitant]
     Indication: BLOOD CHOLESTEROL INCREASED
     Route: 065
     Dates: start: 20050101, end: 20050101
  5. ADVIL [Concomitant]
     Indication: PAIN
     Route: 065
     Dates: start: 20040101
  6. PREDNISONE [Concomitant]
     Route: 065

REACTIONS (10)
  - BLOOD CHOLESTEROL ABNORMAL [None]
  - DYSPEPSIA [None]
  - DYSPNOEA [None]
  - HYPERTENSION [None]
  - MITRAL VALVE INCOMPETENCE [None]
  - MYOCARDIAL INFARCTION [None]
  - PROSTATE CANCER [None]
  - RHEUMATOID ARTHRITIS [None]
  - TRICUSPID VALVE INCOMPETENCE [None]
  - VENTRICULAR HYPERTROPHY [None]
